FAERS Safety Report 24098341 (Version 1)
Quarter: 2024Q3

REPORT INFORMATION
  Report Type: Spontaneous
  Country: US (occurrence: US)
  Receive Date: 20240716
  Receipt Date: 20240716
  Transmission Date: 20241017
  Serious: No
  Sender: SANOFI AVENTIS
  Company Number: US-SA-SAC20240715000655

PATIENT
  Age: 31 Year
  Sex: Male
  Weight: 100.6 kg

DRUGS (1)
  1. DUPIXENT [Suspect]
     Active Substance: DUPILUMAB
     Indication: Chronic rhinosinusitis with nasal polyps
     Dosage: 300MG EVERY 14 DAYS
     Route: 058
     Dates: start: 20220421

REACTIONS (4)
  - Upper-airway cough syndrome [Unknown]
  - Respiratory tract congestion [Unknown]
  - Condition aggravated [Unknown]
  - Product dose omission issue [Unknown]
